FAERS Safety Report 7632634-5 (Version None)
Quarter: 2011Q3

REPORT INFORMATION
  Report Type: 
  Country: None (occurrence: None)
  Receive Date: 20110725
  Receipt Date: 20101104
  Transmission Date: 20111222
  Serious: No
  Sender: FDA-Public Use
  Company Number: US-BRISTOL-MYERS SQUIBB COMPANY-15368830

PATIENT
  Age: 71 Year
  Sex: Female

DRUGS (4)
  1. LISINOPRIL [Concomitant]
  2. POTASSIUM CHLORIDE [Concomitant]
  3. DILTIAZEM [Concomitant]
  4. COUMADIN [Suspect]
     Dates: start: 20100101

REACTIONS (2)
  - ALOPECIA [None]
  - INTERNATIONAL NORMALISED RATIO FLUCTUATION [None]
